FAERS Safety Report 6649933-6 (Version None)
Quarter: 2010Q1

REPORT INFORMATION
  Report Type: 
  Country: None (occurrence: None)
  Receive Date: 20100325
  Receipt Date: 20100316
  Transmission Date: 20100710
  Serious: No
  Sender: FDA-Public Use
  Company Number: US-BIOGENIDEC-2010BI009088

PATIENT
  Age: 72 Year
  Sex: Male

DRUGS (2)
  1. AVONEX [Suspect]
     Indication: MULTIPLE SCLEROSIS
     Route: 030
     Dates: start: 20080601, end: 20090101
  2. AVONEX [Suspect]
     Route: 030
     Dates: start: 20091101, end: 20100203

REACTIONS (2)
  - MEMORY IMPAIRMENT [None]
  - MULTIPLE SCLEROSIS [None]
